FAERS Safety Report 23956880 (Version 1)
Quarter: 2024Q2

REPORT INFORMATION
  Report Type: Other
  Country: CN (occurrence: None)
  Receive Date: 20240610
  Receipt Date: 20240610
  Transmission Date: 20240716
  Serious: Yes (Death, Hospitalization, Other)
  Sender: FDA-Public Use
  Company Number: CN-ROCHE-3554864

PATIENT
  Age: 67 Year
  Sex: Female
  Weight: 50 kg

DRUGS (3)
  1. GLOFITAMAB [Suspect]
     Active Substance: GLOFITAMAB
     Indication: Diffuse large B-cell lymphoma
     Route: 041
     Dates: start: 20240330
  2. GLOFITAMAB [Suspect]
     Active Substance: GLOFITAMAB
     Route: 041
     Dates: start: 20240321
  3. OBINUTUZUMAB [Suspect]
     Active Substance: OBINUTUZUMAB
     Indication: Diffuse large B-cell lymphoma
     Route: 042
     Dates: start: 20240314, end: 20240314

REACTIONS (5)
  - Intra-abdominal haemorrhage [Fatal]
  - Pyrexia [Recovering/Resolving]
  - Haematemesis [Not Recovered/Not Resolved]
  - Gastrointestinal candidiasis [Unknown]
  - Urinary tract infection [Unknown]

NARRATIVE: CASE EVENT DATE: 20240425
